FAERS Safety Report 14201982 (Version 1)
Quarter: 2017Q4

REPORT INFORMATION
  Report Type: Spontaneous
  Country: FR (occurrence: FR)
  Receive Date: 20171117
  Receipt Date: 20171117
  Transmission Date: 20180321
  Serious: Yes (Life-Threatening)
  Sender: FDA-Public Use
  Company Number: FR-ALLERGAN-1766182US

PATIENT
  Age: 27 Year
  Sex: Female

DRUGS (2)
  1. ESCITALOPRAM OXALATE - BP [Suspect]
     Active Substance: ESCITALOPRAM OXALATE
     Indication: POISONING DELIBERATE
     Dosage: 160 MG, SINGLE
     Route: 048
     Dates: start: 20171019, end: 20171019
  2. BACLOFEN. [Suspect]
     Active Substance: BACLOFEN
     Indication: POISONING DELIBERATE
     Dosage: 160 MG, SINGLE
     Route: 048
     Dates: start: 20171019, end: 20171019

REACTIONS (3)
  - Circulatory collapse [Recovered/Resolved]
  - Coma [Recovered/Resolved]
  - Wrong technique in product usage process [Unknown]

NARRATIVE: CASE EVENT DATE: 20171019
